FAERS Safety Report 9991235 (Version 1)
Quarter: 2014Q1

REPORT INFORMATION
  Report Type: Spontaneous
  Country: US (occurrence: US)
  Receive Date: 20140310
  Receipt Date: 20140310
  Transmission Date: 20141002
  Serious: No
  Sender: FDA-Public Use
  Company Number: US-PFIZER INC-2014066935

PATIENT
  Age: 84 Year
  Sex: Female
  Weight: 86.17 kg

DRUGS (5)
  1. CELEBREX [Suspect]
     Indication: TENDONITIS
     Dosage: 200 MG, DAILY
     Dates: start: 20140226, end: 20140302
  2. CELEBREX [Suspect]
     Indication: ABASIA
  3. CELEBREX [Suspect]
     Indication: ROAD TRAFFIC ACCIDENT
  4. PRAVASTATIN [Concomitant]
     Indication: BLOOD CHOLESTEROL INCREASED
     Dosage: 40 MG, 1X/DAY
  5. METOPROLOL [Concomitant]
     Indication: BLOOD PRESSURE
     Dosage: 25 MG, 3X/DAY

REACTIONS (3)
  - Off label use [Unknown]
  - Nervous system disorder [Recovered/Resolved]
  - Anxiety [Recovered/Resolved]
